FAERS Safety Report 12923640 (Version 1)
Quarter: 2016Q4

REPORT INFORMATION
  Report Type: Spontaneous
  Country: US (occurrence: US)
  Receive Date: 20161108
  Receipt Date: 20161108
  Transmission Date: 20170207
  Serious: No
  Sender: FDA-Public Use
  Company Number: None

PATIENT
  Age: 54 Year
  Sex: Male

DRUGS (4)
  1. EPCLUSA [Suspect]
     Active Substance: SOFOSBUVIR\VELPATASVIR
     Indication: HEPATITIS C
  2. EPCLUSA [Suspect]
     Active Substance: SOFOSBUVIR\VELPATASVIR
     Indication: CIRRHOSIS ALCOHOLIC
  3. EPCLUSA [Suspect]
     Active Substance: SOFOSBUVIR\VELPATASVIR
     Indication: GASTROOESOPHAGEAL REFLUX DISEASE
  4. VANCOMYCIN [Concomitant]
     Active Substance: VANCOMYCIN

REACTIONS (3)
  - Haemoglobin decreased [None]
  - Blood creatinine increased [None]
  - Drug dose omission [None]

NARRATIVE: CASE EVENT DATE: 20161108
